FAERS Safety Report 13560701 (Version 1)
Quarter: 2017Q2

REPORT INFORMATION
  Report Type: Spontaneous
  Country: US (occurrence: US)
  Receive Date: 20170518
  Receipt Date: 20170518
  Transmission Date: 20170830
  Serious: No
  Sender: FDA-Public Use
  Company Number: US-ROCHE-719201

PATIENT
  Age: 66 Year
  Sex: Female
  Weight: 73.9 kg

DRUGS (3)
  1. NAPROSYN [Suspect]
     Active Substance: NAPROXEN
     Indication: MYALGIA
     Dosage: DOSE TAKEN FOR ONE WEEK.
     Route: 048
     Dates: start: 20100422, end: 20100428
  2. NIASPAN [Suspect]
     Active Substance: NIACIN
     Indication: BLOOD CHOLESTEROL INCREASED
     Dosage: DRUG REPORTED AS: NIASPAN (COATED) 500 MG (NIACIN EXTENDED RELEASE), DOSE TAKEN AT BEDTIME
     Route: 048
  3. ACETYLSALICYLIC ACID [Concomitant]
     Active Substance: ASPIRIN
     Dosage: DOSE TAKEN PRIOR TO HER DOSE OF NIASPAN
     Route: 048

REACTIONS (2)
  - Increased tendency to bruise [Recovering/Resolving]
  - Blood glucose increased [Unknown]

NARRATIVE: CASE EVENT DATE: 20100422
